FAERS Safety Report 25144376 (Version 1)
Quarter: 2025Q2

REPORT INFORMATION
  Report Type: Report from Study
  Country: AU (occurrence: AU)
  Receive Date: 20250401
  Receipt Date: 20250401
  Transmission Date: 20250716
  Serious: Yes (Death)
  Sender: CSL BEHRING
  Company Number: AU-BEH-2025200604

PATIENT
  Age: 74 Year
  Sex: Male
  Weight: 85 kg

DRUGS (3)
  1. HIZENTRA [Suspect]
     Active Substance: HUMAN IMMUNOGLOBULIN G
     Indication: Chronic inflammatory demyelinating polyradiculoneuropathy
     Dosage: 8 G, QW (PRODUCT STRENGTH: 20%)
     Route: 058
  2. LYRICA [Concomitant]
     Active Substance: PREGABALIN
  3. ENDEP [Concomitant]
     Active Substance: AMITRIPTYLINE HYDROCHLORIDE

REACTIONS (1)
  - Death [Fatal]
